FAERS Safety Report 18612448 (Version 1)
Quarter: 2020Q4

REPORT INFORMATION
  Report Type: Spontaneous
  Country: US (occurrence: US)
  Receive Date: 20201214
  Receipt Date: 20201214
  Transmission Date: 20210114
  Serious: No
  Sender: FDA-Public Use
  Company Number: US-PFIZER INC-2020102000

PATIENT
  Age: 3 Year
  Sex: Female
  Weight: 18.2 kg

DRUGS (5)
  1. GENOTROPIN [Suspect]
     Active Substance: SOMATROPIN
     Dosage: 0.3 MG, 2X/DAY (0.3MG Q (EVERY) 12 HOURS/ TWO INJECTIONS)
     Dates: start: 20200215
  2. GENOTROPIN [Suspect]
     Active Substance: SOMATROPIN
     Dosage: 0.2 IN THE MORNING AND 0.4 AT NIGHT, DAILY
  3. GENOTROPIN [Suspect]
     Active Substance: SOMATROPIN
     Indication: HYPOTHALAMO-PITUITARY DISORDER
     Dosage: 0.2 MG, ALTERNATE DAY (ALTERNATE 0.2 MG WITH 0.4 MG)
     Dates: start: 20200215
  4. GENOTROPIN [Suspect]
     Active Substance: SOMATROPIN
     Dosage: 0.2 ADMINISTERED IN THE MORNING AND 0.2 ADMINISTERED AT NIGHT, DAILY
     Dates: start: 2017
  5. GENOTROPIN [Suspect]
     Active Substance: SOMATROPIN
     Dosage: 0.4 MG, ALTERNATE 0.2 MG WITH 0.4 MG
     Dates: start: 20200215

REACTIONS (4)
  - Blood growth hormone increased [Unknown]
  - Blood glucose increased [Recovered/Resolved]
  - Product dose omission issue [Unknown]
  - Device breakage [Unknown]

NARRATIVE: CASE EVENT DATE: 20201205
